FAERS Safety Report 5409690-8 (Version None)
Quarter: 2007Q3

REPORT INFORMATION
  Report Type: 
  Country: None (occurrence: None)
  Receive Date: 20070808
  Receipt Date: 20070808
  Transmission Date: 20080115
  Serious: Yes (Hospitalization)
  Sender: FDA-Public Use
  Company Number: None

PATIENT
  Sex: Male
  Weight: 72.3 kg

DRUGS (3)
  1. BEVACIZUMAB (RHUMAB VEGF)(704865) [Suspect]
  2. CAMPTOSAR [Suspect]
  3. ELOXATIN [Suspect]

REACTIONS (7)
  - GASTROINTESTINAL HAEMORRHAGE [None]
  - NAUSEA [None]
  - OESOPHAGEAL HAEMORRHAGE [None]
  - OESOPHAGITIS ULCERATIVE [None]
  - PLATELET COUNT DECREASED [None]
  - VOMITING [None]
  - WHITE BLOOD CELL COUNT DECREASED [None]
